FAERS Safety Report 25085101 (Version 2)
Quarter: 2025Q1

REPORT INFORMATION
  Report Type: Spontaneous
  Country: US (occurrence: US)
  Receive Date: 20250317
  Receipt Date: 20250324
  Transmission Date: 20250408
  Serious: No
  Sender: PFIZER
  Company Number: US-PFIZER INC-202500056860

PATIENT
  Age: 4 Year
  Sex: Male

DRUGS (1)
  1. GENOTROPIN [Suspect]
     Active Substance: SOMATROPIN
     Dosage: 0.3 MG, 7 DAYS/WEEK

REACTIONS (5)
  - Malaise [Unknown]
  - Insomnia [Unknown]
  - Product communication issue [Unknown]
  - Device difficult to use [Unknown]
  - Poor quality device used [Unknown]
